FAERS Safety Report 10420557 (Version 1)
Quarter: 2014Q3

REPORT INFORMATION
  Report Type: Spontaneous
  Country: US (occurrence: None)
  Receive Date: 20140714
  Receipt Date: 20140714
  Transmission Date: 20150326
  Serious: No
  Sender: FDA-Public Use
  Company Number: 2014US003141

PATIENT
  Age: 42 Year
  Sex: Male

DRUGS (8)
  1. BACTRIM (SULFAMETHOXAZOLE, TRIMETHOPRIM) [Concomitant]
  2. CYMBALTA [Concomitant]
     Active Substance: DULOXETINE HYDROCHLORIDE
  3. ICLUSIG [Suspect]
     Active Substance: PONATINIB
     Indication: ACUTE LYMPHOCYTIC LEUKAEMIA
     Route: 048
     Dates: start: 20140212
  4. LOPERAMIDE 9LOPERAMIDE HYDROCHLORIDE0 [Concomitant]
  5. AMBIEN [Concomitant]
     Active Substance: ZOLPIDEM TARTRATE
  6. ZANTAC (RANITIDINE HYDROCHLORIDE0 [Concomitant]
  7. ACYCLOVIR (ACICLOVIR SODIUM) [Concomitant]
  8. SENNA [Concomitant]
     Active Substance: SENNA LEAF\SENNOSIDES\SENNOSIDES A AND B

REACTIONS (1)
  - Dysphonia [None]

NARRATIVE: CASE EVENT DATE: 20140218
